FAERS Safety Report 9846745 (Version 2)
Quarter: 2014Q2

REPORT INFORMATION
  Report Type: Spontaneous
  Country: SE (occurrence: SE)
  Receive Date: 20140127
  Receipt Date: 20140422
  Transmission Date: 20141212
  Serious: Yes (Hospitalization)
  Sender: FDA-Public Use
  Company Number: SE-B.I. PHARMACEUTICALS,INC./RIDGEFIELD-2014-BI-02728SW

PATIENT
  Age: 67 Year
  Sex: Female

DRUGS (5)
  1. CATAPRESAN [Suspect]
     Indication: PRODUCT USED FOR UNKNOWN INDICATION
     Route: 065
  2. HUMULIN NPH KWIKPEN [Concomitant]
     Route: 065
  3. METFORMIN [Concomitant]
     Route: 065
  4. VICTOZA [Concomitant]
     Route: 065
  5. CANDESARTAN [Concomitant]
     Route: 065

REACTIONS (3)
  - Vomiting [Unknown]
  - Diarrhoea [Unknown]
  - Hypotension [Unknown]
